FAERS Safety Report 17737258 (Version 1)
Quarter: 2020Q2

REPORT INFORMATION
  Report Type: Other
  Country: ES (occurrence: ES)
  Receive Date: 20200503
  Receipt Date: 20200503
  Transmission Date: 20200714
  Serious: Yes (Other)
  Sender: FDA-Public Use
  Company Number: ES-CADILA HEALTHCARE LIMITED-ES-ZYDUS-049586

PATIENT

DRUGS (1)
  1. CLOPIDOGREL [Suspect]
     Active Substance: CLOPIDOGREL BISULFATE
     Indication: PRODUCT USED FOR UNKNOWN INDICATION
     Dosage: 40 MILLIGRAM, 24 HOURS
     Route: 048
     Dates: start: 20200205, end: 20200210

REACTIONS (2)
  - Dyskinesia [Not Recovered/Not Resolved]
  - Wrong dosage formulation [Recovered/Resolved]

NARRATIVE: CASE EVENT DATE: 20200205
